FAERS Safety Report 7659154-6 (Version None)
Quarter: 2011Q3

REPORT INFORMATION
  Report Type: 
  Country: None (occurrence: None)
  Receive Date: 20110805
  Receipt Date: 20110728
  Transmission Date: 20111222
  Serious: Yes (Life-Threatening, Hospitalization)
  Sender: FDA-Public Use
  Company Number: FR-GLAXOSMITHKLINE-B0735484A

PATIENT
  Sex: Male

DRUGS (6)
  1. CEFTRIAXONE [Concomitant]
     Indication: KLEBSIELLA SEPSIS
     Dosage: 800MG PER DAY
     Route: 065
     Dates: start: 20110604
  2. CARBOPLATIN [Suspect]
     Indication: PRODUCT USED FOR UNKNOWN INDICATION
     Dosage: 240MG SINGLE DOSE
     Route: 042
     Dates: start: 20110523, end: 20110523
  3. GENTAMYCIN SULFATE [Suspect]
     Indication: KLEBSIELLA SEPSIS
     Dosage: 250MG PER DAY
     Route: 042
     Dates: start: 20110601, end: 20110602
  4. PIPERACILLIN AND TAZOBACTAM [Suspect]
     Indication: KLEBSIELLA SEPSIS
     Dosage: 4G THREE TIMES PER DAY
     Route: 042
     Dates: start: 20110601, end: 20110603
  5. VALACYCLOVIR HYDROCHLORIDE [Suspect]
     Indication: MUCOSAL INFLAMMATION
     Route: 048
     Dates: start: 20110513, end: 20110606
  6. ALIMTA [Suspect]
     Indication: PRODUCT USED FOR UNKNOWN INDICATION
     Dosage: 575MG SINGLE DOSE
     Route: 042
     Dates: start: 20110523, end: 20110523

REACTIONS (5)
  - PLEURAL EFFUSION [None]
  - CONDITION AGGRAVATED [None]
  - RENAL FAILURE ACUTE [None]
  - FLUID OVERLOAD [None]
  - OEDEMA PERIPHERAL [None]
